FAERS Safety Report 6290862-8 (Version None)
Quarter: 2009Q3

REPORT INFORMATION
  Report Type: 
  Country: None (occurrence: None)
  Receive Date: 20090730
  Receipt Date: 20070615
  Transmission Date: 20100115
  Serious: Yes (Other)
  Sender: FDA-Public Use
  Company Number: US-ASTRAZENECA-2006UW20928

PATIENT
  Age: 17958 Day
  Sex: Female
  Weight: 86.6 kg

DRUGS (41)
  1. SEROQUEL [Suspect]
     Indication: SCHIZOPHRENIA
     Dosage: 100 MG - 900 MG
     Route: 048
     Dates: start: 20001207
  2. SEROQUEL [Suspect]
     Indication: BIPOLAR DISORDER
     Dosage: 100 MG - 900 MG
     Route: 048
     Dates: start: 20001207
  3. SEROQUEL [Suspect]
     Indication: DEPRESSION
     Dosage: 100 MG - 900 MG
     Route: 048
     Dates: start: 20001207
  4. SEROQUEL [Suspect]
     Indication: ANXIETY
     Dosage: 100 MG - 900 MG
     Route: 048
     Dates: start: 20001207
  5. SEROQUEL [Suspect]
     Route: 048
  6. SEROQUEL [Suspect]
     Route: 048
  7. SEROQUEL [Suspect]
     Route: 048
  8. SEROQUEL [Suspect]
     Route: 048
  9. RISPERDAL [Concomitant]
  10. PENTOXIFYLLINE [Concomitant]
     Route: 065
  11. KETOROLAC TROMETHAMINE [Concomitant]
     Route: 065
  12. GLIPIZIDE [Concomitant]
     Route: 065
  13. METOPROLOL TARTRATE [Concomitant]
     Route: 048
  14. METOPROLOL TARTRATE [Concomitant]
     Dosage: 25 MG - 50 MG
     Route: 048
  15. PROMETHAZINE [Concomitant]
     Route: 065
  16. METOCLOPRAMIDE [Concomitant]
     Dosage: 5 MG - 10 MG
     Route: 065
  17. LORAZEPAM [Concomitant]
     Route: 065
  18. AMBIEN [Concomitant]
     Route: 065
  19. PERCOCET [Concomitant]
     Dosage: 7.5 MG /325 MG
     Route: 065
  20. CELEXA [Concomitant]
     Route: 065
  21. ULTRAM [Concomitant]
     Route: 065
  22. ZANAFLEX [Concomitant]
     Route: 065
  23. PLAVIX [Concomitant]
     Route: 065
  24. ISOSORBIDE DINITRATE [Concomitant]
     Dosage: 30 MG - 60 MG
     Route: 048
  25. NEXIUM [Concomitant]
     Route: 065
  26. NITROSTAT [Concomitant]
     Dosage: 0.3 MG - 0.4 MG
     Route: 060
  27. FUROSEMIDE [Concomitant]
     Dosage: 20 MG - 40 MG
     Route: 065
  28. LIPITOR [Concomitant]
     Dosage: 10 MG - 80 MG
     Route: 048
  29. CARISOPRODOL [Concomitant]
     Route: 065
  30. ACTOS [Concomitant]
     Route: 065
  31. LANTUS [Concomitant]
     Route: 058
  32. ABILIFY [Concomitant]
     Route: 065
  33. FOLIC ACID [Concomitant]
     Route: 048
  34. FERROUS SULFATE TAB [Concomitant]
     Dosage: ONE TABLET DAILY
     Route: 065
  35. AMITRIPTYLINE HCL [Concomitant]
     Route: 048
  36. LOTREL [Concomitant]
     Dosage: 10/20 MG
     Route: 065
  37. PROTONIX [Concomitant]
     Route: 048
  38. DILAUDID [Concomitant]
     Route: 065
  39. BENICAR [Concomitant]
     Route: 048
  40. ASPIRIN [Concomitant]
     Dosage: 81 MG - 325 MG
     Route: 048
  41. TOPAMAX [Concomitant]
     Route: 065

REACTIONS (3)
  - DIABETES MELLITUS [None]
  - DIABETIC GASTROPARESIS [None]
  - DIABETIC NEUROPATHY [None]
